FAERS Safety Report 11030176 (Version 9)
Quarter: 2019Q4

REPORT INFORMATION
  Report Type: Report from Study
  Country: FR (occurrence: FR)
  Receive Date: 20150415
  Receipt Date: 20191009
  Transmission Date: 20200122
  Serious: Yes (Death, Hospitalization, Other)
  Sender: FDA-Public Use
  Company Number: FR-AMGEN-FRANI2015035996

PATIENT
  Age: 68 Year
  Sex: Female
  Weight: 84 kg

DRUGS (22)
  1. STELARA [Suspect]
     Active Substance: USTEKINUMAB
     Dosage: 90 MG, CYCLIC EVERY 12 WEEKS
     Route: 058
     Dates: start: 20170828, end: 20171027
  2. CICLOSPORINE [Suspect]
     Active Substance: CYCLOSPORINE
     Indication: PRODUCT USED FOR UNKNOWN INDICATION
     Dosage: 15 MILLIGRAM, QWK
     Route: 058
     Dates: start: 20180323
  3. COLD CREAM NATUREL [Concomitant]
     Dosage: UNK
     Dates: start: 20150408
  4. ECO [Concomitant]
     Dosage: UNK
     Dates: start: 20180323, end: 201804
  5. DERMOVAL [Concomitant]
     Dosage: UNK
     Dates: start: 20150408
  6. STELARA [Suspect]
     Active Substance: USTEKINUMAB
     Dosage: 90 MG, CYCLIC EVERY 8 WEEKS
     Route: 058
     Dates: start: 20180126, end: 20180323
  7. METHOTREXATE SODIUM. [Suspect]
     Active Substance: METHOTREXATE SODIUM
     Indication: PRODUCT USED FOR UNKNOWN INDICATION
     Dosage: UNK
     Route: 065
     Dates: start: 20180717, end: 20181009
  8. ACITRETIN. [Suspect]
     Active Substance: ACITRETIN
     Indication: PRODUCT USED FOR UNKNOWN INDICATION
     Dosage: 10 MG, 1X/DAY
     Route: 048
     Dates: start: 20170728, end: 20180126
  9. ACITRETIN. [Suspect]
     Active Substance: ACITRETIN
     Dosage: 20 MG, 1X/DAY
     Route: 048
     Dates: start: 20180126, end: 20180323
  10. GLYCEROTONE [GLYCEROL] [Concomitant]
     Dosage: UNK
     Dates: start: 20180323
  11. KARDEGIC [Concomitant]
     Active Substance: ASPIRIN DL-LYSINE
     Dosage: 75 MILLIGRAM, QD
     Route: 048
     Dates: start: 20130620
  12. DAIVOBET [BETAMETHASONE DIPROPIONATE;CALCIPOTRIOL] [Concomitant]
     Dosage: UNK
     Dates: start: 20151126
  13. STELARA [Suspect]
     Active Substance: USTEKINUMAB
     Dosage: 90 MG, CYCLIC EVERY 10 WEEKS
     Route: 058
     Dates: start: 20171027, end: 20180126
  14. COLD CREAM NATUREL [Concomitant]
     Dosage: UNK
     Dates: start: 20180323, end: 20180423
  15. STRESAM [Concomitant]
     Active Substance: ETIFOXINE
     Dosage: UNK
     Dates: start: 20180123
  16. FLECAINE [Concomitant]
     Active Substance: FLECAINIDE
     Dosage: UNK
     Dates: start: 20170728
  17. DERMOVAL [BETAMETHASONE] [Concomitant]
     Active Substance: BETAMETHASONE
     Dosage: UNK
     Dates: start: 20150408
  18. GLYCEROTONE [GLYCEROL] [Concomitant]
     Dosage: UNK
     Dates: start: 20180323
  19. NERISONE [Concomitant]
     Active Substance: DIFLUCORTOLONE VALERATE
     Dosage: UNK
     Dates: start: 20180323, end: 20180423
  20. LOCAPRED [Concomitant]
     Active Substance: DESONIDE
     Dosage: UNK
     Dates: start: 20180323
  21. ETANERCEPT [Suspect]
     Active Substance: ETANERCEPT
     Indication: PSORIASIS
     Route: 065
  22. STELARA [Suspect]
     Active Substance: USTEKINUMAB
     Indication: PRODUCT USED FOR UNKNOWN INDICATION
     Dosage: 90 MG, CYCLIC EVERY 4 WEEKS
     Route: 058
     Dates: start: 20170728, end: 20170828

REACTIONS (7)
  - Tooth abscess [Recovering/Resolving]
  - Dermatitis exfoliative generalised [Fatal]
  - Cutaneous T-cell lymphoma [Fatal]
  - Pruritus [Recovering/Resolving]
  - Psoriasis [Recovering/Resolving]
  - Drug ineffective [Recovering/Resolving]
  - Rectal haemorrhage [Recovered/Resolved with Sequelae]

NARRATIVE: CASE EVENT DATE: 20150330
